FAERS Safety Report 23654200 (Version 1)
Quarter: 2024Q1

REPORT INFORMATION
  Report Type: Spontaneous
  Country: CN (occurrence: CN)
  Receive Date: 20240320
  Receipt Date: 20240320
  Transmission Date: 20240409
  Serious: Yes (Other)
  Sender: FDA-Public Use
  Company Number: CN-TAKEDA-2024TUS024652

PATIENT
  Age: 36 Year
  Sex: Male
  Weight: 70 kg

DRUGS (3)
  1. ADCETRIS [Suspect]
     Active Substance: BRENTUXIMAB VEDOTIN
     Indication: Hodgkin^s disease
     Dosage: 126 MILLIGRAM, QD
     Route: 041
     Dates: start: 20240228, end: 20240228
  2. OXALIPLATIN [Suspect]
     Active Substance: OXALIPLATIN
     Indication: Hodgkin^s disease
     Dosage: 185 MILLIGRAM, QD
     Route: 041
     Dates: start: 20240228, end: 20240228
  3. GEMCITABINE HYDROCHLORIDE [Suspect]
     Active Substance: GEMCITABINE HYDROCHLORIDE
     Indication: Hodgkin^s disease
     Dosage: 1000 MILLIGRAM, QD
     Route: 041
     Dates: start: 20240228, end: 20240228

REACTIONS (2)
  - Anaphylactic shock [Recovering/Resolving]
  - Rash [Recovering/Resolving]
